FAERS Safety Report 8770557 (Version 1)
Quarter: 2012Q4

REPORT INFORMATION
  Report Type: 
  Country: CA (occurrence: CA)
  Receive Date: 20120906
  Receipt Date: 20120906
  Transmission Date: 20130627
  Serious: Yes (Death)
  Sender: FDA-Public Use
  Company Number: PHHY2012CA077148

PATIENT
  Sex: Female

DRUGS (3)
  1. ACLASTA [Suspect]
     Indication: OSTEOPOROSIS
     Route: 042
     Dates: start: 20091216
  2. ACLASTA [Suspect]
     Route: 042
     Dates: start: 20101130
  3. ACLASTA [Suspect]
     Route: 042
     Dates: start: 20111130

REACTIONS (1)
  - Death [Fatal]
